FAERS Safety Report 12218740 (Version 1)
Quarter: 2016Q1

REPORT INFORMATION
  Report Type: Spontaneous
  Country: GB (occurrence: GB)
  Receive Date: 20160329
  Receipt Date: 20160329
  Transmission Date: 20160526
  Serious: Yes (Hospitalization)
  Sender: FDA-Public Use
  Company Number: GB-BAXTER-2016BAX014355

PATIENT
  Sex: Male

DRUGS (13)
  1. SYNTHAMIN [Suspect]
     Active Substance: AMINO ACIDS
     Indication: PARENTERAL NUTRITION
     Route: 065
  2. CERNEVIT [Suspect]
     Active Substance: VITAMINS
     Indication: PARENTERAL NUTRITION
     Route: 065
  3. SODIUM GLYCEROPHOSPHATE [Suspect]
     Active Substance: SODIUM GLYCEROPHOSPHATE
     Indication: PARENTERAL NUTRITION
     Route: 065
  4. SMOFLIPID [Suspect]
     Active Substance: FISH OIL\OLIVEOIL\SOYBEAN OIL\TRIGLYCERIDES,UNSPECIFIED LENGTH
     Indication: PARENTERAL NUTRITION
     Dosage: FORM STRENGTH: 200 MG/ML
     Route: 065
  5. SODIUM ACETATE. [Suspect]
     Active Substance: SODIUM ACETATE
     Indication: PARENTERAL NUTRITION
     Route: 065
  6. WATER FOR INJECTION [Suspect]
     Active Substance: WATER
     Indication: PARENTERAL NUTRITION
     Route: 065
  7. MAGNESIUM SULPHATE [Suspect]
     Active Substance: MAGNESIUM SULFATE
     Indication: PARENTERAL NUTRITION
     Dosage: 49.3% BAG
     Route: 065
  8. ADDITRACE [Suspect]
     Active Substance: MINERALS
     Indication: PARENTERAL NUTRITION
     Route: 065
  9. GLUCOSE 50% W/V CONCENTRATE FOR SOLUTION FOR INFUSION [Suspect]
     Active Substance: DEXTROSE
     Indication: PARENTERAL NUTRITION
     Route: 065
  10. CALCIUM CHLORIDE. [Suspect]
     Active Substance: CALCIUM CHLORIDE
     Indication: PARENTERAL NUTRITION
     Dosage: FORM STRENGTH: 1 MMOL/L
     Route: 065
  11. WATER FOR TPN FORMULATIONS [Suspect]
     Active Substance: WATER
     Indication: PARENTERAL NUTRITION
     Route: 065
  12. ASCORBIC ACID. [Suspect]
     Active Substance: ASCORBIC ACID
     Indication: PARENTERAL NUTRITION
     Dosage: FORM STRENGTH: 100 MG/ML
     Route: 065
  13. POTASSIUM ACETATE. [Suspect]
     Active Substance: POTASSIUM ACETATE
     Indication: PARENTERAL NUTRITION
     Dosage: FORM STRENGTH: 4.9 G\10 ML
     Route: 065

REACTIONS (2)
  - General physical condition abnormal [Unknown]
  - Drug dose omission [Unknown]
